FAERS Safety Report 15606745 (Version 1)
Quarter: 2018Q4

REPORT INFORMATION
  Report Type: Spontaneous
  Country: FR (occurrence: FR)
  Receive Date: 20181112
  Receipt Date: 20181112
  Transmission Date: 20190205
  Serious: Yes (Death, Other)
  Sender: FDA-Public Use
  Company Number: FR-BRISTOL-MYERS SQUIBB COMPANY-BMS-2018-102385

PATIENT
  Age: 95 Year
  Sex: Female

DRUGS (1)
  1. COUMADINE [Suspect]
     Active Substance: WARFARIN SODIUM
     Indication: DEEP VEIN THROMBOSIS
     Dosage: 3 MG, 1 DAY
     Route: 048
     Dates: end: 20150821

REACTIONS (3)
  - International normalised ratio increased [Unknown]
  - Cardiac failure [Fatal]
  - Haematoma [Unknown]

NARRATIVE: CASE EVENT DATE: 201508
